FAERS Safety Report 9032361 (Version 1)
Quarter: 2013Q1

REPORT INFORMATION
  Report Type: Spontaneous
  Country: JP (occurrence: JP)
  Receive Date: 20130125
  Receipt Date: 20130125
  Transmission Date: 20140127
  Serious: Yes (Other)
  Sender: FDA-Public Use
  Company Number: JP-PFIZER INC-2013028487

PATIENT
  Age: 87 Year
  Sex: Male

DRUGS (1)
  1. PIPERACILLIN/TAZOBACTAM [Suspect]
     Dosage: 13.5 G, DAILY
     Route: 041
     Dates: start: 20121110, end: 20121124

REACTIONS (1)
  - Toxic skin eruption [Recovered/Resolved]
